FAERS Safety Report 9790808 (Version 2)
Quarter: 2013Q4

REPORT INFORMATION
  Report Type: Spontaneous
  Country: US (occurrence: US)
  Receive Date: 20131231
  Receipt Date: 20131231
  Transmission Date: 20140711
  Serious: No
  Sender: FDA-Public Use
  Company Number: US-ASTRAZENECA-2013SE72603

PATIENT
  Age: 75 Year
  Sex: Female
  Weight: 81.6 kg

DRUGS (6)
  1. SYMBICORT [Suspect]
     Indication: ASTHMA
     Dosage: 160 4.5 MCG,  2 PUFFS BID
     Route: 055
     Dates: start: 2010
  2. SYMBICORT [Suspect]
     Indication: ASTHMA
     Dosage: 160 4.5 MCG,  2 PUFFS DAILY
     Route: 055
  3. SYMBICORT [Suspect]
     Indication: ASTHMA
     Dosage: 160 4.5 MCG,  2 PUFFS BID
     Route: 055
     Dates: start: 201309
  4. ZAFIRLUKAST [Suspect]
     Indication: MULTIPLE ALLERGIES
     Route: 048
  5. ZAFIRLUKAST [Suspect]
     Indication: MULTIPLE ALLERGIES
     Route: 048
     Dates: start: 201309
  6. ZAFIRLUKAST [Suspect]
     Indication: MULTIPLE ALLERGIES
     Route: 048
     Dates: start: 2013

REACTIONS (6)
  - Presyncope [Recovering/Resolving]
  - Wheezing [Recovering/Resolving]
  - Dyspnoea [Recovering/Resolving]
  - Body height decreased [Unknown]
  - Intentional drug misuse [Recovered/Resolved]
  - Intentional drug misuse [Recovering/Resolving]
